FAERS Safety Report 7282779-7 (Version None)
Quarter: 2011Q1

REPORT INFORMATION
  Report Type: 
  Country: None (occurrence: None)
  Receive Date: 20110209
  Receipt Date: 20101202
  Transmission Date: 20110831
  Serious: Yes (Other)
  Sender: FDA-Public Use
  Company Number: US-BAYER-200913163NA

PATIENT
  Sex: Female

DRUGS (1)
  1. MIRENA [Suspect]
     Indication: CONTRACEPTION
     Dosage: 20 ?G, CONT
     Route: 015
     Dates: start: 20080603

REACTIONS (6)
  - ABDOMINAL PAIN LOWER [None]
  - DEVICE DISLOCATION [None]
  - MUSCLE SPASMS [None]
  - FEELING ABNORMAL [None]
  - DYSMENORRHOEA [None]
  - PAIN [None]
